FAERS Safety Report 6597894-0 (Version None)
Quarter: 2010Q1

REPORT INFORMATION
  Report Type: 
  Country: None (occurrence: None)
  Receive Date: 20100216
  Receipt Date: 20100204
  Transmission Date: 20100710
  Serious: Yes (Hospitalization)
  Sender: FDA-Public Use
  Company Number: 2010AL000884

PATIENT
  Age: 21 Year
  Sex: Male

DRUGS (2)
  1. PAREGORIC LIQUID USP [Suspect]
  2. ATRACURIUM BESYLATE [Suspect]

REACTIONS (1)
  - ANAPHYLACTIC REACTION [None]
